FAERS Safety Report 4399858-4 (Version None)
Quarter: 2004Q3

REPORT INFORMATION
  Report Type: 
  Country: None (occurrence: None)
  Receive Date: 20040716
  Receipt Date: 20040630
  Transmission Date: 20050211
  Serious: Yes (Death, Life-Threatening, Hospitalization)
  Sender: FDA-Public Use
  Company Number: HK-JNJFOC-20040608646

PATIENT
  Age: 61 Year
  Sex: Female
  Weight: 55 kg

DRUGS (9)
  1. REMICADE [Suspect]
     Indication: RHEUMATOID ARTHRITIS
     Dosage: 170 MG, INTRAVENOUS
     Route: 042
     Dates: start: 20040525
  2. METHOTREXATE [Suspect]
     Indication: RHEUMATOID ARTHRITIS
     Dosage: 15 MG, 1 IN 1 WEEK
     Dates: start: 20040525
  3. CACO3 (CALCIUM CARBONATE) [Concomitant]
  4. DILTIAZEM [Concomitant]
  5. SLOW-K [Concomitant]
  6. ALENDRONATE (ALENDRONATE SODIUM) [Concomitant]
  7. FOLIC ACID [Concomitant]
  8. PREDNISOLONE [Concomitant]
  9. DUROGESIC (FENTANYL) [Concomitant]

REACTIONS (7)
  - DISSEMINATED INTRAVASCULAR COAGULATION [None]
  - DRUG INTERACTION [None]
  - IMPLANT SITE INFECTION [None]
  - MULTI-ORGAN FAILURE [None]
  - PULMONARY FUNCTION TEST ABNORMAL [None]
  - RENAL IMPAIRMENT [None]
  - STENOTROPHOMONAS INFECTION [None]
